FAERS Safety Report 7555362-3 (Version None)
Quarter: 2011Q2

REPORT INFORMATION
  Report Type: 
  Country: None (occurrence: None)
  Receive Date: 20110617
  Receipt Date: 20110608
  Transmission Date: 20111010
  Serious: Yes (Hospitalization, Other)
  Sender: FDA-Public Use
  Company Number: US-ASTRAZENECA-2006UW12380

PATIENT
  Age: 76 Year
  Sex: Male

DRUGS (2)
  1. PRADAXA [Concomitant]
  2. NEXIUM [Suspect]
     Route: 048
     Dates: start: 20030616

REACTIONS (3)
  - CORONARY ARTERY BYPASS [None]
  - ABDOMINAL DISTENSION [None]
  - CARDIAC ASSISTANCE DEVICE USER [None]
